FAERS Safety Report 8820002 (Version 3)
Quarter: 2012Q4

REPORT INFORMATION
  Report Type: Report from Study
  Country: JP (occurrence: JP)
  Receive Date: 20121001
  Receipt Date: 20121227
  Transmission Date: 20130627
  Serious: Yes (Other)
  Sender: FDA-Public Use
  Company Number: JP-VERTEX PHARMACEUTICAL INC.-AE-2012-010395

PATIENT
  Age: 66 Year
  Sex: Female

DRUGS (17)
  1. VX-950 (TELAPREVIR) [Suspect]
     Indication: CHRONIC HEPATITIS C
     Dosage: 1500 mg, qd
     Route: 048
     Dates: start: 20120404, end: 20120523
  2. REBETOL [Suspect]
     Indication: CHRONIC HEPATITIS C
     Dosage: 600 mg, qd
     Route: 048
     Dates: start: 20120404, end: 20120508
  3. REBETOL [Suspect]
     Dosage: 400 mg, qd
     Route: 048
     Dates: start: 20120509, end: 20120516
  4. REBETOL [Suspect]
     Dosage: 200 mg, qd
     Route: 048
     Dates: start: 20120517, end: 20120523
  5. REBETOL [Suspect]
     Dosage: 200 mg, qd
     Route: 048
     Dates: start: 20120704, end: 20120717
  6. REBETOL [Suspect]
     Dosage: 400 mg, qd
     Route: 048
     Dates: start: 20120718
  7. PEGINTERFERON ALFA-2B [Suspect]
     Indication: CHRONIC HEPATITIS C
     Dosage: 1.5 ?g/kg, qw
     Route: 058
     Dates: start: 20120404, end: 20120523
  8. PEGINTERFERON ALFA-2B [Suspect]
     Dosage: 1 ?g/kg, qw
     Route: 058
     Dates: start: 20120704, end: 20120801
  9. PEGINTERFERON ALFA-2B [Suspect]
     Dosage: 0.7 ?g/kg, qw
     Route: 058
     Dates: start: 20120808
  10. PARIET [Suspect]
     Indication: PROPHYLAXIS
     Dosage: 10 mg, qd
     Route: 048
     Dates: start: 20120516, end: 20120517
  11. NEXIUM                             /01479302/ [Concomitant]
     Dosage: 10 mg, qd
     Route: 048
     Dates: start: 20120509, end: 20120515
  12. PRIMPERAN [Concomitant]
     Dosage: 5 mg, prn
     Route: 048
     Dates: end: 20120518
  13. LOXOPROFEN [Concomitant]
     Dosage: 60 mg, prn
     Route: 048
  14. LOXOPROFEN [Concomitant]
     Dosage: 60 mg, prn
     Route: 048
     Dates: start: 20120725
  15. SESDEN [Concomitant]
     Dosage: 7.5 mg, qd
     Route: 030
     Dates: start: 20120528, end: 20120528
  16. HYALEIN [Concomitant]
     Dosage: UNK, qd
     Route: 031
     Dates: start: 20120919
  17. REBAMIPIDE AMEL [Concomitant]
     Dosage: UNK UNK, prn
     Route: 048
     Dates: start: 20120407, end: 20120418

REACTIONS (4)
  - Neutrophil count decreased [Not Recovered/Not Resolved]
  - Haemoglobin decreased [Not Recovered/Not Resolved]
  - Haemoglobin decreased [Not Recovered/Not Resolved]
  - Haemoglobin decreased [Recovered/Resolved]
